FAERS Safety Report 6326236-0 (Version None)
Quarter: 2009Q3

REPORT INFORMATION
  Report Type: 
  Country: None (occurrence: None)
  Receive Date: 20090820
  Receipt Date: 20090811
  Transmission Date: 20100115
  Serious: No
  Sender: FDA-Public Use
  Company Number: 2009009539

PATIENT
  Age: 1 Year
  Sex: Female

DRUGS (1)
  1. ACTIQ [Suspect]
     Dosage: BU
     Route: 002
     Dates: start: 20090811, end: 20090811

REACTIONS (1)
  - ACCIDENTAL DRUG INTAKE BY CHILD [None]
